FAERS Safety Report 7089348-2 (Version None)
Quarter: 2010Q4

REPORT INFORMATION
  Report Type: 
  Country: None (occurrence: None)
  Receive Date: 20101108
  Receipt Date: 20101025
  Transmission Date: 20110411
  Serious: Yes (Hospitalization, Other)
  Sender: FDA-Public Use
  Company Number: GB-TEVA-244624ISR

PATIENT
  Sex: Male

DRUGS (13)
  1. PREDNISOLONE [Suspect]
     Indication: PROSTATE CANCER METASTATIC
     Route: 048
     Dates: start: 20100428
  2. ABIRATERONE ACETATE- BLINDED TABLETS/PLACEBO (BLINDED STUDY) [Suspect]
     Indication: PROSTATE CANCER METASTATIC
     Route: 048
     Dates: start: 20100428, end: 20100601
  3. PREDNISOLONE ACETATE [Suspect]
     Indication: PROSTATE CANCER METASTATIC
     Route: 048
     Dates: start: 20100428
  4. GOSERELIN [Concomitant]
     Indication: BLOOD TESTOSTERONE ABNORMAL
     Route: 042
     Dates: start: 20100409
  5. IBUPROFEN [Concomitant]
     Indication: ANALGESIC THERAPY
  6. PARACETAMOL [Concomitant]
     Indication: ANALGESIC THERAPY
  7. SIMVASTATIN [Concomitant]
     Indication: HYPERCHOLESTEROLAEMIA
     Route: 048
     Dates: start: 20100101
  8. BENDROFLUMETHIAZIDE [Concomitant]
     Indication: HYPERTENSION
     Route: 048
     Dates: start: 20100101
  9. MORPHINE SULFATE [Concomitant]
     Indication: ANALGESIC THERAPY
     Route: 048
     Dates: start: 20100526
  10. DICLOFENAC SODIUM [Concomitant]
     Indication: ANALGESIC THERAPY
     Route: 048
     Dates: start: 20100526
  11. OMEPRAZOLE [Concomitant]
     Indication: GASTRIC ULCER
     Route: 048
     Dates: start: 20100526
  12. DORBANEX [Concomitant]
     Indication: CONSTIPATION
     Route: 048
     Dates: start: 20100526
  13. CLARITHROMYCIN [Concomitant]
     Indication: LOWER RESPIRATORY TRACT INFECTION
     Route: 048
     Dates: start: 20100608

REACTIONS (1)
  - PLEURAL EFFUSION [None]
